FAERS Safety Report 9764232 (Version 1)
Quarter: 2013Q4

REPORT INFORMATION
  Report Type: Spontaneous
  Country: FR (occurrence: FR)
  Receive Date: 20131216
  Receipt Date: 20131216
  Transmission Date: 20140711
  Serious: Yes (Other)
  Sender: FDA-Public Use
  Company Number: FR-BRISTOL-MYERS SQUIBB COMPANY-19899087

PATIENT
  Age: 32 Year
  Sex: Female

DRUGS (3)
  1. YERVOY [Suspect]
     Indication: METASTATIC MALIGNANT MELANOMA
     Dosage: YERVOY 5 MG/ML?SOLUTION FOR INFUSION ?INJ
     Route: 042
     Dates: start: 20130812, end: 20131014
  2. XENETIX [Suspect]
     Dosage: 1 DF=250 NO UNITS
     Route: 042
     Dates: start: 20130625, end: 20131018
  3. IOMERON [Suspect]
     Dosage: ONE SINGLE DOSE
     Route: 042
     Dates: start: 20130506

REACTIONS (1)
  - Hyperthyroidism [Not Recovered/Not Resolved]
